FAERS Safety Report 7585812-8 (Version None)
Quarter: 2011Q3

REPORT INFORMATION
  Report Type: 
  Country: None (occurrence: None)
  Receive Date: 20110701
  Receipt Date: 20110623
  Transmission Date: 20111222
  Serious: Yes (Other)
  Sender: FDA-Public Use
  Company Number: US-ABBOTT-11P-163-0834367-00

PATIENT
  Sex: Male
  Weight: 64.468 kg

DRUGS (17)
  1. UNKNOWN CHEMOTHERAPY [Suspect]
     Indication: PRODUCT USED FOR UNKNOWN INDICATION
     Dates: start: 20091001, end: 20091001
  2. SULFASALAZINE [Concomitant]
     Indication: RHEUMATOID ARTHRITIS
  3. CELEBREX [Concomitant]
     Indication: RHEUMATOID ARTHRITIS
  4. PREDNISONE [Concomitant]
     Indication: RHEUMATOID ARTHRITIS
  5. PLAVIX [Concomitant]
     Indication: THROMBOSIS PROPHYLAXIS
  6. TARCEVA [Concomitant]
     Indication: PROPHYLAXIS
  7. PREVACID [Concomitant]
     Indication: ANTACID THERAPY
  8. HUMIRA [Suspect]
     Indication: RHEUMATOID ARTHRITIS
     Dates: start: 20070101, end: 20090701
  9. WELLBUTRIN [Concomitant]
     Indication: DEPRESSION
  10. UNKNOWN CHEMOTHERAPY [Suspect]
     Dates: start: 20091201, end: 20100401
  11. PLAQUENIL [Concomitant]
     Indication: RHEUMATOID ARTHRITIS
  12. TARCEVA [Concomitant]
     Indication: LUNG NEOPLASM MALIGNANT
  13. MULTI-VITAMINS [Concomitant]
     Indication: PRODUCT USED FOR UNKNOWN INDICATION
  14. ACTONEL [Concomitant]
     Indication: OSTEOPOROSIS
  15. LIPITOR [Concomitant]
     Indication: BLOOD CHOLESTEROL INCREASED
  16. ALTACE [Concomitant]
     Indication: HYPERTENSION
  17. CALCIUM CARBONATE [Concomitant]
     Indication: OSTEOPOROSIS

REACTIONS (7)
  - WEIGHT DECREASED [None]
  - INTESTINAL OBSTRUCTION [None]
  - COUGH [None]
  - NON-SMALL CELL LUNG CANCER STAGE II [None]
  - TENDON RUPTURE [None]
  - MASS [None]
  - GASTROINTESTINAL HAEMORRHAGE [None]
